FAERS Safety Report 12711779 (Version 1)
Quarter: 2016Q3

REPORT INFORMATION
  Report Type: Other
  Country: US (occurrence: US)
  Receive Date: 20160902
  Receipt Date: 20160902
  Transmission Date: 20161109
  Serious: Yes (Hospitalization)
  Sender: FDA-Public Use
  Company Number: US-HAEMONETICS CORP-1057007

PATIENT
  Age: 149 Year
  Sex: Female
  Weight: 650 kg

DRUGS (1)
  1. CP2D AND AS-3 NUTRICEL [Suspect]
     Active Substance: ADENINE\CITRIC ACID MONOHYDRATE\DEXTROSE\SODIUM CHLORIDE\SODIUM CITRATE\SODIUM PHOSPHATE
     Indication: POSTPARTUM HAEMORRHAGE
     Route: 042
     Dates: start: 20160607, end: 20160607

REACTIONS (1)
  - Anaphylactic transfusion reaction [Recovered/Resolved]

NARRATIVE: CASE EVENT DATE: 20160607
